FAERS Safety Report 8387911-X (Version None)
Quarter: 2012Q2

REPORT INFORMATION
  Report Type: 
  Country: None (occurrence: None)
  Receive Date: 20120525
  Receipt Date: 20120523
  Transmission Date: 20120825
  Serious: Yes (Other)
  Sender: FDA-Public Use
  Company Number: US-BAYER-2012-051510

PATIENT
  Sex: Female

DRUGS (10)
  1. MULTIHANCE [Suspect]
     Indication: NUCLEAR MAGNETIC RESONANCE IMAGING
  2. MULTIHANCE [Suspect]
     Indication: ANGIOGRAM
  3. MAGNEVIST [Suspect]
     Indication: ANGIOGRAM
  4. OPTIMARK [Suspect]
     Indication: NUCLEAR MAGNETIC RESONANCE IMAGING
  5. MAGNEVIST [Suspect]
     Indication: NUCLEAR MAGNETIC RESONANCE IMAGING
     Dosage: UNK
  6. OMNISCAN [Suspect]
     Indication: ANGIOGRAM
  7. PROHANCE [Suspect]
     Indication: NUCLEAR MAGNETIC RESONANCE IMAGING
  8. OMNISCAN [Suspect]
     Indication: NUCLEAR MAGNETIC RESONANCE IMAGING
  9. OPTIMARK [Suspect]
     Indication: ANGIOGRAM
  10. PROHANCE [Suspect]
     Indication: ANGIOGRAM

REACTIONS (8)
  - INJURY [None]
  - FIBROSIS [None]
  - DISABILITY [None]
  - NEPHROGENIC SYSTEMIC FIBROSIS [None]
  - ANXIETY [None]
  - DEFORMITY [None]
  - EMOTIONAL DISTRESS [None]
  - PAIN [None]
